FAERS Safety Report 8159047 (Version 2)
Quarter: 2015Q1

REPORT INFORMATION
  Report Type: Spontaneous
  Country: US (occurrence: US)
  Receive Date: 20110927
  Receipt Date: 20150312
  Transmission Date: 20150721
  Serious: Yes (Death, Life-Threatening, Congenital Anomaly)
  Sender: FDA-Public Use
  Company Number: US-ELI_LILLY_AND_COMPANY-US201109004063

PATIENT

DRUGS (3)
  1. PROZAC [Suspect]
     Active Substance: FLUOXETINE HYDROCHLORIDE
     Indication: PRODUCT USED FOR UNKNOWN INDICATION
  2. NUMORPHAN [Concomitant]
     Active Substance: OXYMORPHONE HYDROCHLORIDE
     Route: 064
  3. ZOLOFT [Concomitant]
     Active Substance: SERTRALINE HYDROCHLORIDE
     Route: 064

REACTIONS (6)
  - Hypoplastic left heart syndrome [Fatal]
  - Atrial septal defect [Fatal]
  - Aortic valve atresia [Fatal]
  - Patent ductus arteriosus [Fatal]
  - Foetal exposure during pregnancy [Unknown]
  - Mitral valve atresia [Fatal]
